FAERS Safety Report 23473602 (Version 2)
Quarter: 2024Q1

REPORT INFORMATION
  Report Type: Spontaneous
  Country: FR (occurrence: FR)
  Receive Date: 20240203
  Receipt Date: 20240220
  Transmission Date: 20240410
  Serious: Yes (Other)
  Sender: FDA-Public Use
  Company Number: FR-Korea IPSEN-2024-01611

PATIENT
  Age: 28 Year
  Sex: Female

DRUGS (1)
  1. LANREOTIDE ACETATE [Suspect]
     Active Substance: LANREOTIDE ACETATE
     Indication: Acromegaly
     Route: 065

REACTIONS (6)
  - Syncope [Unknown]
  - Abdominal pain [Unknown]
  - Headache [Unknown]
  - Asthenia [Unknown]
  - Off label use [Unknown]
  - Prescribed underdose [Unknown]
